FAERS Safety Report 15355573 (Version 1)
Quarter: 2018Q4

REPORT INFORMATION
  Report Type: Spontaneous
  Country: US (occurrence: US)
  Receive Date: 20180906
  Receipt Date: 20180906
  Transmission Date: 20190204
  Serious: No
  Sender: FDA-Public Use
  Company Number: US-TEVA-2018-US-951705

PATIENT
  Sex: Male

DRUGS (3)
  1. SEROQUEL [Concomitant]
     Active Substance: QUETIAPINE FUMARATE
  2. AUSTEDO [Suspect]
     Active Substance: DEUTETRABENAZINE
     Indication: HUNTINGTON^S DISEASE
     Dosage: 48 MILLIGRAM DAILY;
     Route: 048
     Dates: start: 201806
  3. ATIVAN [Concomitant]
     Active Substance: LORAZEPAM

REACTIONS (3)
  - Diarrhoea [Unknown]
  - Chorea [Unknown]
  - Dry mouth [Unknown]
